FAERS Safety Report 13439986 (Version 2)
Quarter: 2017Q2

REPORT INFORMATION
  Report Type: Spontaneous
  Country: US (occurrence: US)
  Receive Date: 20170413
  Receipt Date: 20170608
  Transmission Date: 20170830
  Serious: Yes (Other)
  Sender: FDA-Public Use
  Company Number: US-NOVOPROD-540169

PATIENT
  Age: 12 Year
  Sex: Male
  Weight: 31.2 kg

DRUGS (2)
  1. NORDITROPIN [Suspect]
     Active Substance: SOMATROPIN
     Indication: BODY HEIGHT BELOW NORMAL
  2. NORDITROPIN [Suspect]
     Active Substance: SOMATROPIN
     Indication: NOONAN SYNDROME
     Dosage: 0.3 MG/KG/PER WEEK
     Route: 058
     Dates: start: 201601, end: 20170102

REACTIONS (1)
  - Bone giant cell tumour [Not Recovered/Not Resolved]

NARRATIVE: CASE EVENT DATE: 201612
